FAERS Safety Report 5712309-X (Version None)
Quarter: 2008Q2

REPORT INFORMATION
  Report Type: 
  Country: None (occurrence: None)
  Receive Date: 20080417
  Receipt Date: 20080403
  Transmission Date: 20081010
  Serious: Yes (Other)
  Sender: FDA-Public Use
  Company Number: 2008PL000041

PATIENT
  Age: 79 Year
  Sex: Female
  Weight: 96.1626 kg

DRUGS (7)
  1. LOTRONEX [Suspect]
     Indication: IRRITABLE BOWEL SYNDROME
     Dosage: 1 MG; QD; PO; BID; PO
     Route: 048
     Dates: start: 20001201, end: 20080301
  2. LOTRONEX [Suspect]
     Indication: IRRITABLE BOWEL SYNDROME
     Dosage: 1 MG; QD; PO; BID; PO
     Route: 048
     Dates: start: 20001201, end: 20080301
  3. AMIODARONE HCL [Concomitant]
  4. MAXZIDE [Concomitant]
  5. DIOVANE [Concomitant]
  6. TOPROR [Concomitant]
  7. LISINOPRIL [Concomitant]

REACTIONS (1)
  - COLITIS ISCHAEMIC [None]
